FAERS Safety Report 8056016-X (Version None)
Quarter: 2012Q1

REPORT INFORMATION
  Report Type: 
  Country: None (occurrence: None)
  Receive Date: 20120119
  Receipt Date: 20120113
  Transmission Date: 20120608
  Serious: Yes (Hospitalization, Other)
  Sender: FDA-Public Use
  Company Number: MT-JHP PHARMACEUTICALS, LLC-JHP201200018

PATIENT
  Age: 26 Year
  Sex: Female

DRUGS (3)
  1. HYDROCORTISONE [Concomitant]
     Indication: HYPERSENSITIVITY
     Dosage: 200 MG, UNK
     Route: 030
  2. EPINEPHRINE [Suspect]
     Indication: HYPERSENSITIVITY
     Dosage: 500 ?G, SINGLE
     Route: 030
  3. PROTON PUMP INHIBITORS [Concomitant]
     Indication: DYSPEPSIA

REACTIONS (1)
  - STRESS CARDIOMYOPATHY [None]
